FAERS Safety Report 5339381-3 (Version None)
Quarter: 2007Q2

REPORT INFORMATION
  Report Type: 
  Country: None (occurrence: None)
  Receive Date: 20070322
  Receipt Date: 20061018
  Transmission Date: 20071010
  Serious: Yes (Hospitalization)
  Sender: FDA-Public Use
  Company Number: 200613754BCC

PATIENT
  Age: 69 Year
  Sex: Female
  Weight: 68.0396 kg

DRUGS (4)
  1. ALEVE (CAPLET) [Suspect]
     Indication: LIMB INJURY
     Dosage: 220-440 MG, QD; ORAL
     Route: 048
     Dates: start: 20051201
  2. ALEVE (CAPLET) [Suspect]
     Indication: LIMB OPERATION
     Dosage: 220-440 MG, QD; ORAL
     Route: 048
     Dates: start: 20051201
  3. OXYCONTIN [Concomitant]
  4. DARVOCET [Concomitant]

REACTIONS (4)
  - GASTROINTESTINAL DISORDER [None]
  - GASTROINTESTINAL HAEMORRHAGE [None]
  - LOSS OF CONSCIOUSNESS [None]
  - OESOPHAGEAL DISORDER [None]
